FAERS Safety Report 18511724 (Version 2)
Quarter: 2020Q4

REPORT INFORMATION
  Report Type: Report from Study
  Country: CO (occurrence: CO)
  Receive Date: 20201117
  Receipt Date: 20201205
  Transmission Date: 20210114
  Serious: Yes (Hospitalization)
  Sender: FDA-Public Use
  Company Number: NVSC2020CO302251

PATIENT
  Sex: Male
  Weight: 72 kg

DRUGS (2)
  1. TASIGNA [Suspect]
     Active Substance: NILOTINIB
     Indication: CHRONIC MYELOID LEUKAEMIA
     Dosage: 300 MG, Q12H (DRUG STOPPED APPROXIMATELY 5MONTHS AGO)
     Route: 048
     Dates: start: 20190801
  2. TASIGNA [Suspect]
     Active Substance: NILOTINIB
     Dosage: 300 MG, Q12H
     Route: 048
     Dates: start: 20201118

REACTIONS (5)
  - Malignant neoplasm progression [Unknown]
  - Product supply issue [Unknown]
  - Chronic myeloid leukaemia [Unknown]
  - Hypertension [Unknown]
  - Platelet count decreased [Recovered/Resolved]
